FAERS Safety Report 8422652-1 (Version None)
Quarter: 2012Q2

REPORT INFORMATION
  Report Type: 
  Country: None (occurrence: None)
  Receive Date: 20120608
  Receipt Date: 20120530
  Transmission Date: 20120825
  Serious: Yes (Other)
  Sender: FDA-Public Use
  Company Number: US-ASTRAZENECA-2012SE10797

PATIENT
  Age: 58 Year
  Sex: Male

DRUGS (4)
  1. METOPROLOL SUCCINATE [Suspect]
     Route: 048
  2. CRESTOR [Suspect]
     Route: 048
  3. DIOVAN HCT [Concomitant]
     Dosage: 160MG/25MG
  4. ALPRAZOLAM ER [Concomitant]

REACTIONS (3)
  - DRUG HYPERSENSITIVITY [None]
  - DIZZINESS [None]
  - SYNCOPE [None]
